FAERS Safety Report 15823412 (Version 1)
Quarter: 2019Q1

REPORT INFORMATION
  Report Type: Spontaneous
  Country: US (occurrence: US)
  Receive Date: 20190114
  Receipt Date: 20190114
  Transmission Date: 20190417
  Serious: No
  Sender: FDA-Public Use
  Company Number: US-PFIZER INC-2019016660

PATIENT
  Age: 41 Year
  Sex: Female

DRUGS (1)
  1. IBRANCE [Suspect]
     Active Substance: PALBOCICLIB
     Indication: MALIGNANT NEOPLASM OF EYE
     Dosage: 100 MG, CYCLIC (1 WEEK ON AND 1 WEEK OFF)
     Route: 048

REACTIONS (2)
  - Full blood count decreased [Recovered/Resolved]
  - Product use in unapproved indication [Unknown]
